FAERS Safety Report 16321915 (Version 7)
Quarter: 2020Q3

REPORT INFORMATION
  Report Type: Spontaneous
  Country: US (occurrence: US)
  Receive Date: 20190516
  Receipt Date: 20200721
  Transmission Date: 20201102
  Serious: Yes (Other)
  Sender: FDA-Public Use
  Company Number: US-PFIZER INC-2019193333

PATIENT
  Age: 13 Year
  Sex: Male
  Weight: 74.97 kg

DRUGS (23)
  1. RAPAMUNE [Suspect]
     Active Substance: SIROLIMUS
     Indication: ASTROCYTOMA, LOW GRADE
  2. EUCERIN [Suspect]
     Active Substance: ENSULIZOLE\EUCERIN\OCTINOXATE\OCTISALATE\TITANIUM DIOXIDE\ZINC OXIDE
     Indication: ANGIOFIBROMA
     Dosage: UNK
     Route: 061
  3. RAPAMUNE [Suspect]
     Active Substance: SIROLIMUS
     Indication: LUNG DISORDER
  4. TRILEPTAL [Concomitant]
     Active Substance: OXCARBAZEPINE
     Dosage: 1200 MG, DAILY (600 MG IN MORNING AND 600 MG AT NIGHT)
     Route: 048
  5. RAPAMUNE [Suspect]
     Active Substance: SIROLIMUS
     Indication: VISUAL IMPAIRMENT
  6. RAPAMUNE [Suspect]
     Active Substance: SIROLIMUS
     Indication: OTITIS MEDIA CHRONIC
  7. RAPAMUNE [Suspect]
     Active Substance: SIROLIMUS
     Indication: PARTIAL SEIZURES
  8. RAPAMUNE [Suspect]
     Active Substance: SIROLIMUS
     Indication: BRAIN NEOPLASM
  9. RAPAMUNE [Suspect]
     Active Substance: SIROLIMUS
     Indication: ANGIOFIBROMA
     Dosage: 2 MG, 1X/DAY (30?DAY SUPPLY, TAKE 1 TAB BY MOUTH 1 TIME A DAY, QUANTITY 30)
     Route: 048
     Dates: start: 2017, end: 201901
  10. RAPAMUNE [Suspect]
     Active Substance: SIROLIMUS
     Indication: PNEUMONIA ASPIRATION
  11. TRILEPTAL [Concomitant]
     Active Substance: OXCARBAZEPINE
     Indication: SEIZURE
     Dosage: 900 MG, DAILY (450 MG IN MORNING AND 450 MG AT NIGHT)
     Route: 048
  12. STRATTERA [Concomitant]
     Active Substance: ATOMOXETINE HYDROCHLORIDE
     Indication: ATTENTION DEFICIT HYPERACTIVITY DISORDER
     Dosage: 60 MG, 1X/DAY
     Route: 048
  13. RAPAMUNE [Suspect]
     Active Substance: SIROLIMUS
     Indication: ANGIOFIBROMA
     Dosage: 1 MG/ML; APPLY THIN LAYER TO FACE TWICE DAILY
     Route: 061
  14. RAPAMUNE [Suspect]
     Active Substance: SIROLIMUS
     Indication: PARTIAL SEIZURES
     Dosage: 1 MG/ML, 2X/DAY (USE AS DIRECTED TO APPLY TO AFFECTED AREA, QUANTITY 60 ML)
  15. RAPAMUNE [Suspect]
     Active Substance: SIROLIMUS
     Indication: BRAIN NEOPLASM
  16. RAPAMUNE [Suspect]
     Active Substance: SIROLIMUS
     Indication: ASTROCYTOMA, LOW GRADE
  17. RAPAMUNE [Suspect]
     Active Substance: SIROLIMUS
     Indication: VISUAL IMPAIRMENT
  18. RAPAMUNE [Suspect]
     Active Substance: SIROLIMUS
     Indication: TUBEROUS SCLEROSIS COMPLEX
     Dosage: 1 MG/ML, APPLIED TO FACE, AT LEAST ONCE A DAY, MIXED 1:1 WITH A LOTION
     Route: 061
     Dates: start: 2017, end: 201901
  19. RAPAMUNE [Suspect]
     Active Substance: SIROLIMUS
     Indication: PNEUMONIA ASPIRATION
  20. RAPAMUNE [Suspect]
     Active Substance: SIROLIMUS
     Indication: LUNG DISORDER
  21. RAPAMUNE [Suspect]
     Active Substance: SIROLIMUS
     Indication: TUBEROUS SCLEROSIS COMPLEX
  22. EUCERIN [Suspect]
     Active Substance: ENSULIZOLE\EUCERIN\OCTINOXATE\OCTISALATE\TITANIUM DIOXIDE\ZINC OXIDE
     Indication: MULTIPLE SCLEROSIS
  23. RAPAMUNE [Suspect]
     Active Substance: SIROLIMUS
     Indication: OTITIS MEDIA CHRONIC

REACTIONS (5)
  - Product use in unapproved indication [Unknown]
  - Condition aggravated [Not Recovered/Not Resolved]
  - Off label use [Unknown]
  - Seizure [Not Recovered/Not Resolved]
  - Product use issue [Unknown]
